FAERS Safety Report 8168380-1 (Version None)
Quarter: 2012Q1

REPORT INFORMATION
  Report Type: 
  Country: None (occurrence: None)
  Receive Date: 20120227
  Receipt Date: 20120215
  Transmission Date: 20120608
  Serious: Yes (Hospitalization)
  Sender: FDA-Public Use
  Company Number: GR-MERCK-1202USA02985

PATIENT
  Age: 50 Year
  Sex: Male

DRUGS (1)
  1. CANCIDAS [Suspect]
     Indication: SYSTEMIC MYCOSIS
     Route: 042

REACTIONS (1)
  - DRUG INEFFECTIVE [None]
